FAERS Safety Report 9227139 (Version 1)
Quarter: 2013Q1

REPORT INFORMATION
  Report Type: Spontaneous
  Country: US (occurrence: None)
  Receive Date: 20121012
  Receipt Date: 20121012
  Transmission Date: 20140127
  Serious: Yes (Other)
  Sender: FDA-Public Use
  Company Number: 1000029076

PATIENT
  Age: 53 Year
  Sex: Female

DRUGS (8)
  1. LEXAPRO (ESCITALOPRAM OXALATE) (10 MILLIGRAM, TABLETS) [Suspect]
     Indication: DEPRESSION
     Dosage: 10 MG (10MG, 1 IN 1 D), ORAL
     Route: 048
     Dates: start: 201109, end: 20120314
  2. AMLODIPINE (AMLODIPINE) (AMLODIPINE) [Concomitant]
  3. ZOLPIDEM (ZOLPIDEM) (ZOLPIDEM) [Concomitant]
  4. HYZAAR (HYZAAR) (HYZAAR) [Concomitant]
  5. PREMARIN (ESTROGEN CONJUGATED) (ESTROGENS CONJUGATED) [Concomitant]
  6. TOPROL (METOPROLOL SUCCINATE) (METOPROLOL SUCCINATE) [Concomitant]
  7. TRAZODONE (TRAZODONE) (TRAZODONE) [Concomitant]
  8. MAXALT (RIZATRIPTAN) (RIZATRIPTAN) [Concomitant]

REACTIONS (2)
  - Angioedema [None]
  - Rash [None]
